FAERS Safety Report 23344938 (Version 1)
Quarter: 2023Q4

REPORT INFORMATION
  Report Type: Spontaneous
  Country: FR (occurrence: FR)
  Receive Date: 20231228
  Receipt Date: 20231228
  Transmission Date: 20240110
  Serious: Yes (Other)
  Sender: FDA-Public Use
  Company Number: FR-SERVIER-S23014276

PATIENT
  Age: 36 Year
  Sex: Female
  Weight: 47 kg

DRUGS (2)
  1. MELATONIN [Suspect]
     Active Substance: MELATONIN
     Indication: Insomnia
     Dosage: 6 MILLIGRAM, ONCE A DAY
     Route: 048
     Dates: start: 2022
  2. TIBSOVO [Suspect]
     Active Substance: IVOSIDENIB
     Indication: Glioma
     Dosage: 500 MILLIGRAM, ONCE A DAY
     Route: 048
     Dates: start: 20230703

REACTIONS (6)
  - Endometriosis [Recovered/Resolved]
  - Vomiting [Recovered/Resolved]
  - Weight decreased [Not Recovered/Not Resolved]
  - Insomnia [Recovering/Resolving]
  - Off label use [Recovered/Resolved]
  - Drug interaction [Recovered/Resolved]

NARRATIVE: CASE EVENT DATE: 20230701
